FAERS Safety Report 8044572-7 (Version None)
Quarter: 2012Q1

REPORT INFORMATION
  Report Type: 
  Country: None (occurrence: None)
  Receive Date: 20120113
  Receipt Date: 20120113
  Transmission Date: 20120608
  Serious: Yes (Other)
  Sender: FDA-Public Use
  Company Number: None

PATIENT
  Age: 3 Day
  Sex: Female
  Weight: 49.895 kg

DRUGS (1)
  1. EXCEDRIN (MIGRAINE) [Suspect]
     Indication: HEADACHE
     Dosage: 2 TABLETS
     Route: 048
     Dates: start: 20120109, end: 20120109

REACTIONS (7)
  - ABDOMINAL DISCOMFORT [None]
  - FEELING OF BODY TEMPERATURE CHANGE [None]
  - BLISTER [None]
  - SWOLLEN TONGUE [None]
  - MALAISE [None]
  - URTICARIA [None]
  - EYE SWELLING [None]
